FAERS Safety Report 10461523 (Version 2)
Quarter: 2015Q1

REPORT INFORMATION
  Report Type: Spontaneous
  Country: US (occurrence: US)
  Receive Date: 20140918
  Receipt Date: 20150202
  Transmission Date: 20150720
  Serious: Yes (Death, Hospitalization, Other)
  Sender: FDA-Public Use
  Company Number: US-009507513-1409USA008047

PATIENT
  Sex: Male
  Weight: 108.84 kg

DRUGS (1)
  1. JANUVIA [Suspect]
     Active Substance: SITAGLIPTIN PHOSPHATE
     Indication: TYPE 2 DIABETES MELLITUS
     Dosage: 100 MG, QD
     Route: 048
     Dates: start: 20120827, end: 20121115

REACTIONS (17)
  - Death [Fatal]
  - Cardiac failure [Unknown]
  - Bile duct obstruction [Unknown]
  - Metastases to liver [Unknown]
  - Splenic lesion [Unknown]
  - Spinal osteoarthritis [Unknown]
  - Pancreatic carcinoma metastatic [Unknown]
  - Metastases to lung [Unknown]
  - Bile duct stent insertion [Unknown]
  - Hydrocholecystis [Unknown]
  - Renal cyst [Unknown]
  - Gallbladder disorder [Unknown]
  - Aortic arteriosclerosis [Unknown]
  - Diverticulum intestinal [Unknown]
  - Duodenal sphincterotomy [Unknown]
  - Diabetes mellitus inadequate control [Unknown]
  - Ureterocele [Unknown]

NARRATIVE: CASE EVENT DATE: 201209
